FAERS Safety Report 4989511-8 (Version None)
Quarter: 2006Q2

REPORT INFORMATION
  Report Type: 
  Country: None (occurrence: None)
  Receive Date: 20060502
  Receipt Date: 20050928
  Transmission Date: 20061013
  Serious: Yes (Hospitalization)
  Sender: FDA-Public Use
  Company Number: US-MERCK-0510USA04632

PATIENT
  Age: 53 Year
  Sex: Female

DRUGS (17)
  1. GLUCOPHAGE [Concomitant]
     Route: 065
  2. PRILOSEC [Concomitant]
     Route: 065
  3. SKELAXIN [Concomitant]
     Route: 065
  4. DIPYRIDAMOLE [Concomitant]
     Route: 065
  5. LASIX [Concomitant]
     Route: 065
  6. XANAX [Concomitant]
     Route: 065
  7. ZESTRIL [Concomitant]
     Route: 065
  8. KLOR-CON [Concomitant]
     Route: 065
  9. VIOXX [Suspect]
     Route: 048
     Dates: start: 19990801
  10. VIOXX [Suspect]
     Route: 048
     Dates: start: 20000501
  11. ZYRTEC [Concomitant]
     Route: 065
  12. NASONEX [Concomitant]
     Route: 065
  13. PREMPRO [Concomitant]
     Route: 065
  14. [THERAPY UNSPECIFIED] [Concomitant]
     Route: 065
  15. PROVENTIL [Concomitant]
     Route: 065
  16. ASPIRIN [Concomitant]
     Route: 065
  17. CYANOCOBALAMIN [Concomitant]
     Route: 065

REACTIONS (14)
  - ARTERIOSCLEROSIS [None]
  - BLOOD PRESSURE INCREASED [None]
  - CAROTID ARTERY OCCLUSION [None]
  - CAROTID ARTERY STENOSIS [None]
  - CEREBRAL ARTERIOSCLEROSIS [None]
  - CEREBROVASCULAR ACCIDENT [None]
  - DIZZINESS [None]
  - FIBROMYALGIA [None]
  - HEMIPARESIS [None]
  - HYPERCHOLESTEROLAEMIA [None]
  - NEUROLOGICAL SYMPTOM [None]
  - OTITIS EXTERNA [None]
  - SPINAL DISORDER [None]
  - TRANSIENT ISCHAEMIC ATTACK [None]
